FAERS Safety Report 5122971-0 (Version None)
Quarter: 2006Q4

REPORT INFORMATION
  Report Type: 
  Country: None (occurrence: None)
  Receive Date: 20061005
  Receipt Date: 20061005
  Transmission Date: 20070319
  Serious: Yes (Hospitalization)
  Sender: FDA-Public Use
  Company Number: None

PATIENT
  Sex: Female
  Weight: 70 kg

DRUGS (1)
  1. MYLOTARG [Suspect]
     Dosage: 8.5 MG     SEE IMAGE

REACTIONS (7)
  - APLASIA [None]
  - BACTERIAL INFECTION [None]
  - BLOOD CULTURE POSITIVE [None]
  - LEUKAEMIA CUTIS [None]
  - LEUKAEMIA RECURRENT [None]
  - NODULE [None]
  - PYREXIA [None]
